FAERS Safety Report 11337802 (Version 1)
Quarter: 2015Q3

REPORT INFORMATION
  Report Type: Spontaneous
  Country: US (occurrence: US)
  Receive Date: 20150803
  Receipt Date: 20150803
  Transmission Date: 20151125
  Serious: No
  Sender: FDA-Public Use
  Company Number: US-ELI_LILLY_AND_COMPANY-US200912004257

PATIENT
  Age: 31 Year
  Sex: Female

DRUGS (2)
  1. XANAX [Concomitant]
     Active Substance: ALPRAZOLAM
  2. ZYPREXA [Suspect]
     Active Substance: OLANZAPINE
     Dosage: 5 MG, DAILY (1/D)
     Dates: start: 20090501, end: 20091123

REACTIONS (2)
  - Drug dose omission [Recovered/Resolved]
  - Dystonia [Recovered/Resolved]
